FAERS Safety Report 23540997 (Version 1)
Quarter: 2024Q1

REPORT INFORMATION
  Report Type: Spontaneous
  Country: US (occurrence: US)
  Receive Date: 20240219
  Receipt Date: 20240219
  Transmission Date: 20240410
  Serious: No
  Sender: FDA-Public Use
  Company Number: US-Stemline Therapeutics, Inc.-2024ST000533

PATIENT
  Age: 43 Year
  Sex: Female

DRUGS (1)
  1. ORSERDU [Suspect]
     Active Substance: ELACESTRANT
     Indication: Product used for unknown indication
     Dosage: 345MG, ONCE A DAY
     Route: 048
     Dates: start: 20231119

REACTIONS (5)
  - Product availability issue [Unknown]
  - Malaise [Unknown]
  - Product dose omission issue [Unknown]
  - Feeling abnormal [Unknown]
  - Nausea [Unknown]
